FAERS Safety Report 6641572-6 (Version None)
Quarter: 2010Q1

REPORT INFORMATION
  Report Type: 
  Country: None (occurrence: None)
  Receive Date: 20100317
  Receipt Date: 20100317
  Transmission Date: 20100710
  Serious: Yes (Other)
  Sender: FDA-Public Use
  Company Number: None

PATIENT
  Age: 75 Year
  Sex: Female
  Weight: 57.1 kg

DRUGS (10)
  1. AMIODARONE HCL [Suspect]
     Indication: ATRIAL FIBRILLATION
     Dosage: 300 MG ONCE IV
     Route: 042
     Dates: start: 20100120
  2. LOSORTAN [Concomitant]
  3. ASPIRIN [Concomitant]
  4. APAP TAB [Concomitant]
  5. CAFFEINE [Concomitant]
  6. HYDROCHLOROTHIAZIDE [Concomitant]
  7. M.V.I. [Concomitant]
  8. AMLODIPINE [Concomitant]
  9. PREDNISONE TAB [Concomitant]
  10. METOPROLOL [Concomitant]

REACTIONS (2)
  - HEART RATE DECREASED [None]
  - HYPOTENSION [None]
